FAERS Safety Report 12916767 (Version 1)
Quarter: 2016Q4

REPORT INFORMATION
  Report Type: Spontaneous
  Country: US (occurrence: US)
  Receive Date: 20161107
  Receipt Date: 20161107
  Transmission Date: 20170207
  Serious: No
  Sender: FDA-Public Use
  Company Number: US-BAYER-2016-208183

PATIENT
  Age: 58 Year
  Sex: Male

DRUGS (1)
  1. DESONATE [Suspect]
     Active Substance: DESONIDE
     Indication: DERMATITIS PSORIASIFORM
     Dosage: UNK UNK, QD
     Route: 061
     Dates: start: 201609

REACTIONS (2)
  - Dermatitis psoriasiform [Not Recovered/Not Resolved]
  - Drug ineffective for unapproved indication [None]

NARRATIVE: CASE EVENT DATE: 201609
